FAERS Safety Report 7819257-X (Version None)
Quarter: 2011Q4

REPORT INFORMATION
  Report Type: 
  Country: None (occurrence: None)
  Receive Date: 20111018
  Receipt Date: 20100825
  Transmission Date: 20120403
  Serious: No
  Sender: FDA-Public Use
  Company Number: US-ASTRAZENECA-2010SE40134

PATIENT
  Age: 82 Year
  Sex: Female
  Weight: 79.4 kg

DRUGS (3)
  1. SYMBICORT [Suspect]
     Dosage: 320 MCG BID
     Route: 055
     Dates: start: 20090101
  2. DIABETIC MEDICATION [Concomitant]
  3. BLOOD PRESSURE MEDICATION [Concomitant]

REACTIONS (1)
  - DRY MOUTH [None]
